FAERS Safety Report 11461231 (Version 1)
Quarter: 2015Q3

REPORT INFORMATION
  Report Type: Spontaneous
  Country: US (occurrence: US)
  Receive Date: 20150831
  Receipt Date: 20150831
  Transmission Date: 20151125
  Serious: No
  Sender: FDA-Public Use
  Company Number: US-ELI_LILLY_AND_COMPANY-US201007002965

PATIENT
  Sex: Female

DRUGS (12)
  1. PRILOSEC [Concomitant]
     Active Substance: OMEPRAZOLE MAGNESIUM
  2. VITAMIN B12 [Concomitant]
     Active Substance: CYANOCOBALAMIN
  3. PENTASA [Concomitant]
     Active Substance: MESALAMINE
  4. ASA [Concomitant]
     Active Substance: ASPIRIN
  5. CYMBALTA [Suspect]
     Active Substance: DULOXETINE HYDROCHLORIDE
     Indication: DEPRESSION
     Dosage: 60 MG, DAILY (1/D)
  6. XANAX [Concomitant]
     Active Substance: ALPRAZOLAM
  7. BONIVA [Concomitant]
     Active Substance: IBANDRONATE SODIUM
  8. PREMARIN [Concomitant]
     Active Substance: ESTROGENS, CONJUGATED
  9. SYNTHROID [Concomitant]
     Active Substance: LEVOTHYROXINE SODIUM
  10. CYMBALTA [Suspect]
     Active Substance: DULOXETINE HYDROCHLORIDE
     Dosage: 30 MG, DAILY (1/D)
  11. CALCIUM [Concomitant]
     Active Substance: CALCIUM
  12. AMBIEN [Concomitant]
     Active Substance: ZOLPIDEM TARTRATE

REACTIONS (3)
  - Akathisia [Recovered/Resolved]
  - Tardive dyskinesia [Not Recovered/Not Resolved]
  - Dysphonia [Not Recovered/Not Resolved]
